FAERS Safety Report 5808884-7 (Version None)
Quarter: 2008Q3

REPORT INFORMATION
  Report Type: 
  Country: None (occurrence: None)
  Receive Date: 20080714
  Receipt Date: 20080709
  Transmission Date: 20090109
  Serious: Yes (Hospitalization)
  Sender: FDA-Public Use
  Company Number: DE-ASTRAZENECA-2008PK01467

PATIENT
  Age: 47 Year
  Sex: Female
  Weight: 92 kg

DRUGS (13)
  1. SEROQUEL [Suspect]
     Indication: BIPOLAR DISORDER
     Dosage: 118 MG
     Route: 048
     Dates: start: 20070810, end: 20070909
  2. ORFIRIL LONG [Suspect]
     Indication: BIPOLAR DISORDER
     Dosage: 918 MG
     Route: 048
     Dates: start: 20070808, end: 20070909
  3. LORAZEPAM [Concomitant]
     Dosage: 2.2 MG
     Route: 048
     Dates: start: 20070807, end: 20070817
  4. LORAZEPAM [Concomitant]
     Dosage: 0.5 MG
     Route: 048
     Dates: start: 20070819, end: 20070819
  5. ZOLPIDEM TARTRATE [Concomitant]
     Route: 048
     Dates: start: 20070807, end: 20070809
  6. BELOC ZOK [Concomitant]
     Indication: HYPERTENSION
     Route: 048
     Dates: start: 20070301, end: 20070807
  7. BELOC ZOK [Concomitant]
     Dosage: 95 MG
     Route: 048
     Dates: start: 20070808
  8. ESCITALOPRAM [Concomitant]
     Indication: DEPRESSION
     Route: 048
     Dates: start: 20070821, end: 20070905
  9. ESCITALOPRAM [Concomitant]
     Dosage: 18 MG
     Route: 048
     Dates: start: 20070907, end: 20070910
  10. RELPAX [Concomitant]
     Dosage: 3 DAYS PER MONTH
     Route: 048
     Dates: start: 20060901, end: 20070831
  11. MIGRAEFLUX [Concomitant]
     Dosage: 3 DAYS PER MONTH
     Route: 048
     Dates: start: 20060901, end: 20070831
  12. AMITRYPTYLIN [Concomitant]
     Route: 048
     Dates: start: 20070701, end: 20070701
  13. DIURETIC [Concomitant]
     Route: 048
     Dates: start: 20070701, end: 20070701

REACTIONS (1)
  - HEPATITIS [None]
